FAERS Safety Report 5956481-5 (Version None)
Quarter: 2008Q4

REPORT INFORMATION
  Report Type: 
  Country: None (occurrence: None)
  Receive Date: 20081118
  Receipt Date: 20081110
  Transmission Date: 20090506
  Serious: Yes (Hospitalization)
  Sender: FDA-Public Use
  Company Number: A0683989A

PATIENT
  Age: 54 Year
  Sex: Male
  Weight: 93.2 kg

DRUGS (2)
  1. AVANDIA [Suspect]
     Dosage: 4MG PER DAY
     Route: 048
     Dates: start: 20050601, end: 20070501
  2. AVANDAMET [Suspect]
     Route: 048
     Dates: start: 20040601, end: 20050801

REACTIONS (8)
  - ACUTE CORONARY SYNDROME [None]
  - ANXIETY [None]
  - ARTERIOSCLEROSIS [None]
  - CORONARY ARTERY DISEASE [None]
  - INJURY [None]
  - MITRAL VALVE PROLAPSE [None]
  - MYOCARDIAL INFARCTION [None]
  - PAIN [None]
